FAERS Safety Report 8333480-X (Version None)
Quarter: 2012Q2

REPORT INFORMATION
  Report Type: 
  Country: None (occurrence: None)
  Receive Date: 20120503
  Receipt Date: 20101102
  Transmission Date: 20120825
  Serious: No
  Sender: FDA-Public Use
  Company Number: US-TEVA-2010005725

PATIENT
  Sex: Male
  Weight: 79.45 kg

DRUGS (8)
  1. NUVIGIL [Suspect]
     Dosage: 125 MILLIGRAM;
     Route: 048
     Dates: start: 20101029
  2. NUVIGIL [Suspect]
     Indication: ATTENTION DEFICIT/HYPERACTIVITY DISORDER
     Dosage: 150 MILLIGRAM;
     Route: 048
     Dates: start: 20101019, end: 20101023
  3. SELEGILINE [Concomitant]
     Dates: start: 20080101
  4. XANAX [Concomitant]
     Indication: ANXIETY
     Dates: start: 20080101
  5. ZYRTEC [Concomitant]
     Dates: start: 20100901
  6. LAMOTRIGINE [Concomitant]
     Dates: start: 20090101
  7. LISINOPRIL [Concomitant]
     Indication: HYPERTENSION
     Dates: start: 20070101
  8. ZEGERID [Concomitant]
     Indication: GASTROOESOPHAGEAL REFLUX DISEASE
     Dates: start: 20101001

REACTIONS (11)
  - NECK PAIN [None]
  - HEADACHE [None]
  - DEPRESSION [None]
  - PHOTOPHOBIA [None]
  - PAIN IN JAW [None]
  - DIZZINESS [None]
  - ANXIETY [None]
  - FEELING JITTERY [None]
  - FATIGUE [None]
  - FEELING ABNORMAL [None]
  - NAUSEA [None]
